FAERS Safety Report 4908357-X (Version None)
Quarter: 2006Q1

REPORT INFORMATION
  Report Type: 
  Country: None (occurrence: None)
  Receive Date: 20060210
  Receipt Date: 20060201
  Transmission Date: 20060701
  Serious: Yes (Other)
  Sender: FDA-Public Use
  Company Number: PT-ABBOTT-06P-130-0323911-00

PATIENT
  Age: 21 Year
  Sex: Male

DRUGS (1)
  1. ESE 1000 [Suspect]
     Indication: INFECTION PROPHYLAXIS
     Route: 048
     Dates: start: 20051227, end: 20051229

REACTIONS (3)
  - ABDOMINAL DISCOMFORT [None]
  - FEELING ABNORMAL [None]
  - PYREXIA [None]
